FAERS Safety Report 14304908 (Version 1)
Quarter: 2017Q4

REPORT INFORMATION
  Report Type: Spontaneous
  Country: JP (occurrence: JP)
  Receive Date: 20171219
  Receipt Date: 20171219
  Transmission Date: 20180321
  Serious: Yes (Hospitalization)
  Sender: FDA-Public Use
  Company Number: JP-OTSUKA-JP-2013-14385

PATIENT
  Age: 34 Year
  Sex: Male

DRUGS (15)
  1. ABILIFY [Suspect]
     Active Substance: ARIPIPRAZOLE
     Dosage: 3 MG, TID
     Route: 048
     Dates: start: 20130729, end: 20130902
  2. ABILIFY [Suspect]
     Active Substance: ARIPIPRAZOLE
     Dosage: 3 MG, BID
     Route: 048
     Dates: start: 20130724, end: 20130728
  3. ABILIFY [Suspect]
     Active Substance: ARIPIPRAZOLE
     Dosage: 3 MG, BID
     Route: 048
     Dates: start: 20130903, end: 20130912
  4. LIMAS [Concomitant]
     Active Substance: LITHIUM CARBONATE
     Indication: DEPRESSION
     Dosage: 200 MG, QID
     Route: 048
     Dates: start: 20070521, end: 20130920
  5. CYMBALTA [Concomitant]
     Active Substance: DULOXETINE HYDROCHLORIDE
     Indication: DEPRESSION
     Dosage: 20 MG, TID
     Route: 048
     Dates: start: 20130702, end: 20130920
  6. ZOPICLONE [Concomitant]
     Active Substance: ZOPICLONE
     Dosage: TAB
     Route: 048
     Dates: end: 20130921
  7. RISPERIDONE. [Concomitant]
     Active Substance: RISPERIDONE
     Dosage: UNK
     Dates: start: 20130919, end: 20130921
  8. MAGLAX [Concomitant]
     Active Substance: MAGNESIUM OXIDE
     Indication: CONSTIPATION
     Dosage: 660 MG, TID
     Route: 048
     Dates: start: 20081215, end: 20130920
  9. AMOBAN [Concomitant]
     Active Substance: ZOPICLONE
     Dosage: 7.5 MG, QD
     Route: 048
     Dates: end: 20130921
  10. LEXOTAN [Concomitant]
     Active Substance: BROMAZEPAM
     Indication: ANXIETY
     Dosage: 12 MG, QD
     Route: 048
     Dates: start: 20130617, end: 20130920
  11. TRYPTANOL [Concomitant]
     Active Substance: AMITRIPTYLINE
     Indication: DEPRESSION
     Dosage: 50 MG, TID
     Route: 048
     Dates: start: 20130702, end: 20130920
  12. CERCINE [Concomitant]
     Active Substance: DIAZEPAM
     Indication: INSOMNIA
     Dosage: 5 MG, BID
     Route: 048
     Dates: start: 20120907, end: 20130920
  13. ABILIFY [Suspect]
     Active Substance: ARIPIPRAZOLE
     Indication: DEPRESSION
     Dosage: 3 MG, QD
     Route: 048
     Dates: start: 20130719, end: 20130723
  14. BENZALIN [Concomitant]
     Active Substance: NITRAZEPAM
     Dosage: 5 MG, QD
     Route: 048
     Dates: end: 20130921
  15. CYMBALTA [Concomitant]
     Active Substance: DULOXETINE HYDROCHLORIDE
     Dosage: CAPS
     Route: 048
     Dates: start: 20130702, end: 20130920

REACTIONS (4)
  - Hallucination [Recovering/Resolving]
  - Hallucination, auditory [Not Recovered/Not Resolved]
  - Stupor [Not Recovered/Not Resolved]
  - Delusion [Recovering/Resolving]

NARRATIVE: CASE EVENT DATE: 20130728
